FAERS Safety Report 9764231 (Version 1)
Quarter: 2013Q4

REPORT INFORMATION
  Report Type: Report from Study
  Country: KR (occurrence: KR)
  Receive Date: 20131216
  Receipt Date: 20131216
  Transmission Date: 20140711
  Serious: Yes (Death)
  Sender: FDA-Public Use
  Company Number: KR-ROCHE-1315908

PATIENT
  Sex: 0

DRUGS (1)
  1. CAPECITABINE [Suspect]
     Indication: RECTAL CANCER
     Dosage: FOR 10 WEEKS
     Route: 065
     Dates: start: 201001, end: 201109

REACTIONS (1)
  - Duodenal ulcer haemorrhage [Fatal]
